FAERS Safety Report 19167742 (Version 2)
Quarter: 2021Q2

REPORT INFORMATION
  Report Type: Spontaneous
  Country: CA (occurrence: CA)
  Receive Date: 20210422
  Receipt Date: 20210511
  Transmission Date: 20210717
  Serious: Yes (Life-Threatening, Other)
  Sender: FDA-Public Use
  Company Number: CA-ORPHANEU-2020003622

PATIENT

DRUGS (1)
  1. UNSPECIFIED PASIREOTIDE [Suspect]
     Active Substance: PASIREOTIDE
     Indication: HYPERINSULINAEMIC HYPOGLYCAEMIA
     Dosage: 150 UG, BID
     Route: 058
     Dates: start: 20200512, end: 20200529

REACTIONS (7)
  - Product use in unapproved indication [Unknown]
  - Headache [Recovering/Resolving]
  - Rash pruritic [Recovering/Resolving]
  - Hypotension [Recovering/Resolving]
  - Lethargy [Recovering/Resolving]
  - Presyncope [Recovering/Resolving]
  - Listless [Recovering/Resolving]

NARRATIVE: CASE EVENT DATE: 20200519
